FAERS Safety Report 18252932 (Version 2)
Quarter: 2020Q3

REPORT INFORMATION
  Report Type: Spontaneous
  Country: PT (occurrence: PT)
  Receive Date: 20200910
  Receipt Date: 20200921
  Transmission Date: 20201103
  Serious: Yes (Hospitalization, Other)
  Sender: FDA-Public Use
  Company Number: PT-SA-2020SA244352

PATIENT

DRUGS (9)
  1. IRBESARTAN HYDROCHLORIDE [Suspect]
     Active Substance: IRBESARTAN
     Dosage: 150 MG
  2. ACETYLSALICYLIC ACID [Suspect]
     Active Substance: ASPIRIN
     Dosage: 100 MG
  3. RIFAMPICIN [Suspect]
     Active Substance: RIFAMPIN
     Dosage: 600 MG, QD
  4. PARACETAMOL [Suspect]
     Active Substance: ACETAMINOPHEN
     Dosage: UNK
  5. FLUOXETINE [Suspect]
     Active Substance: FLUOXETINE HYDROCHLORIDE
     Dosage: 20 MG
  6. VITAMIN B12 [VITAMIN B12 NOS] [Suspect]
     Active Substance: CYANOCOBALAMIN
     Dosage: UNK
  7. ESOMEPRAZOLE. [Suspect]
     Active Substance: ESOMEPRAZOLE MAGNESIUM
     Dosage: 20 MG
  8. DOXYCYCLINE. [Suspect]
     Active Substance: DOXYCYCLINE
     Dosage: 100 MG, BID
  9. SIMVASTATIN. [Suspect]
     Active Substance: SIMVASTATIN
     Dosage: 20 MG

REACTIONS (14)
  - Normocytic anaemia [Recovering/Resolving]
  - Hypogammaglobulinaemia [Recovered/Resolved]
  - Mucosal discolouration [Recovered/Resolved]
  - Splenomegaly [Recovered/Resolved]
  - Drug ineffective [Recovered/Resolved]
  - Enteritis [Unknown]
  - Serum ferritin increased [Recovered/Resolved]
  - Brucellosis [Recovered/Resolved]
  - Hypochromic anaemia [Recovering/Resolving]
  - Chronic gastritis [Recovered/Resolved]
  - Back pain [Recovered/Resolved]
  - C-reactive protein increased [Recovered/Resolved]
  - Vitamin B12 decreased [Recovered/Resolved]
  - Leukopenia [Recovered/Resolved]
